FAERS Safety Report 26133237 (Version 1)
Quarter: 2025Q4

REPORT INFORMATION
  Report Type: Spontaneous
  Country: US (occurrence: US)
  Receive Date: 20251209
  Receipt Date: 20251209
  Transmission Date: 20260117
  Serious: No
  Sender: BOEHRINGER INGELHEIM
  Company Number: US-Komodo Health-a23aa00000CUpz3AAD

PATIENT
  Age: 72 Year
  Sex: Male

DRUGS (1)
  1. JARDIANCE [Suspect]
     Active Substance: EMPAGLIFLOZIN
     Indication: Cardiac disorder
     Dates: start: 202510, end: 20251121

REACTIONS (4)
  - Fatigue [Recovered/Resolved]
  - Arthralgia [Recovered/Resolved]
  - Sleep disorder [Recovered/Resolved]
  - Pain [Recovered/Resolved]

NARRATIVE: CASE EVENT DATE: 20251101
